FAERS Safety Report 8968948 (Version 1)
Quarter: 2012Q4

REPORT INFORMATION
  Report Type: 
  Country: US (occurrence: US)
  Receive Date: 20121218
  Receipt Date: 20121218
  Transmission Date: 20130627
  Serious: No
  Sender: FDA-Public Use
  Company Number: US-BRISTOL-MYERS SQUIBB COMPANY-16688368

PATIENT
  Age: 70 Year
  Sex: Female

DRUGS (3)
  1. ABILIFY TABS [Suspect]
     Indication: ANXIETY
  2. ABILIFY TABS [Suspect]
     Indication: BIPOLAR II DISORDER
  3. ABILIFY TABS [Suspect]
     Indication: POST-TRAUMATIC STRESS DISORDER

REACTIONS (1)
  - Dyskinesia [Recovered/Resolved]
